FAERS Safety Report 19867197 (Version 1)
Quarter: 2021Q3

REPORT INFORMATION
  Report Type: Spontaneous
  Country: DE (occurrence: DE)
  Receive Date: 20210921
  Receipt Date: 20210921
  Transmission Date: 20211014
  Serious: Yes (Other)
  Sender: FDA-Public Use
  Company Number: NVSC2021DE208206

PATIENT
  Age: 1 Day
  Sex: Male
  Weight: 3.37 kg

DRUGS (5)
  1. METHYLDOPA. [Suspect]
     Active Substance: METHYLDOPA
     Indication: HYPERTENSION
     Dosage: UNK
     Route: 064
     Dates: start: 20200217, end: 20201106
  2. OLANZAPINE. [Suspect]
     Active Substance: OLANZAPINE
     Indication: BIPOLAR DISORDER
     Dosage: UNK (5 MG/D)
     Route: 064
     Dates: start: 20200217, end: 20201106
  3. DULOXETIN ? 1 A PHARMA [Suspect]
     Active Substance: DULOXETINE HYDROCHLORIDE
     Indication: PRODUCT USED FOR UNKNOWN INDICATION
     Dosage: UNK (120 MG/D (BIS 60)
     Route: 064
     Dates: start: 20200217, end: 20201106
  4. PROTAPHANE [Concomitant]
     Active Substance: INSULIN HUMAN
     Indication: GESTATIONAL DIABETES
     Dosage: UNK
     Route: 064
  5. NOVORAPID [Concomitant]
     Active Substance: INSULIN ASPART
     Indication: GESTATIONAL DIABETES
     Dosage: UNK
     Route: 064

REACTIONS (5)
  - Respiratory disorder neonatal [Recovered/Resolved]
  - Foetal exposure during pregnancy [Unknown]
  - Selective eating disorder [Recovered/Resolved]
  - Myoclonus [Recovered/Resolved]
  - Agitation neonatal [Recovered/Resolved]

NARRATIVE: CASE EVENT DATE: 20201106
